FAERS Safety Report 9531908 (Version 1)
Quarter: 2013Q3

REPORT INFORMATION
  Report Type: Spontaneous
  Country: US (occurrence: None)
  Receive Date: 20130917
  Receipt Date: 20130917
  Transmission Date: 20140515
  Serious: Yes (Hospitalization)
  Sender: FDA-Public Use
  Company Number: None

PATIENT
  Age: 62 Year
  Sex: Female
  Weight: 102 kg

DRUGS (11)
  1. IBUPROFEN [Suspect]
     Indication: BACK PAIN
     Route: 048
  2. COD LIVER OIL [Concomitant]
  3. DILTIAZEM [Concomitant]
  4. VALSARTAN [Concomitant]
  5. HYDROCHLOROTHIAZIDE [Concomitant]
  6. FLUTICASONE [Concomitant]
  7. GLIPIZIDE [Concomitant]
  8. INSULIN GLARGINE [Concomitant]
  9. FUROSEMIDE [Concomitant]
  10. METFORMIN [Concomitant]
  11. ALBUTEROL [Concomitant]

REACTIONS (3)
  - Occult blood positive [None]
  - Dyspnoea [None]
  - Haemoglobin decreased [None]
